FAERS Safety Report 22794997 (Version 29)
Quarter: 2025Q2

REPORT INFORMATION
  Report Type: Spontaneous
  Country: US (occurrence: US)
  Receive Date: 20230807
  Receipt Date: 20250619
  Transmission Date: 20250716
  Serious: Yes (Other)
  Sender: DAIICHI
  Company Number: US-DSJP-DSU-2023-132256

PATIENT
  Sex: Female

DRUGS (5)
  1. ENHERTU [Suspect]
     Active Substance: FAM-TRASTUZUMAB DERUXTECAN-NXKI
     Indication: Breast cancer metastatic
     Dosage: UNK, ONCE EVERY 3 WK
     Route: 065
     Dates: start: 202305, end: 202305
  2. ENHERTU [Suspect]
     Active Substance: FAM-TRASTUZUMAB DERUXTECAN-NXKI
     Indication: HER2 positive breast cancer
     Dosage: UNK, ONCE EVERY 3 WK
     Route: 065
     Dates: start: 202404, end: 202404
  3. ENHERTU [Suspect]
     Active Substance: FAM-TRASTUZUMAB DERUXTECAN-NXKI
     Indication: HER2 low breast cancer
  4. CINVANTI [Suspect]
     Active Substance: APREPITANT
     Indication: Premedication
     Route: 065
  5. EMEND [Suspect]
     Active Substance: APREPITANT
     Indication: Premedication
     Route: 065

REACTIONS (76)
  - Mental impairment [Unknown]
  - Neuropathy peripheral [Unknown]
  - Mucosal disorder [Unknown]
  - Gastrointestinal disorder [Unknown]
  - Feeling abnormal [Unknown]
  - Toxicity to various agents [Unknown]
  - Feeling cold [Unknown]
  - Hot flush [Unknown]
  - Adverse drug reaction [Unknown]
  - Gait disturbance [Unknown]
  - Memory impairment [Unknown]
  - Eructation [Unknown]
  - Somnolence [Unknown]
  - Insomnia [Unknown]
  - Mental disorder [Unknown]
  - Weight abnormal [Unknown]
  - Drug intolerance [Unknown]
  - Rash vesicular [Unknown]
  - Cardiotoxicity [Unknown]
  - Feeling abnormal [Unknown]
  - Depression [Unknown]
  - Dry skin [Unknown]
  - Dry mouth [Unknown]
  - Dysstasia [Unknown]
  - Feeling abnormal [Unknown]
  - Parosmia [Unknown]
  - Weight fluctuation [Unknown]
  - Gastrooesophageal reflux disease [Unknown]
  - Near death experience [Unknown]
  - Pain [Unknown]
  - Eructation [Unknown]
  - Nervous system disorder [Unknown]
  - Hypoaesthesia [Unknown]
  - Thermoanaesthesia [Unknown]
  - Hypoaesthesia [Unknown]
  - Asthma [Unknown]
  - Functional gastrointestinal disorder [Unknown]
  - Mucosal dryness [Unknown]
  - Depressed mood [Unknown]
  - Paraesthesia [Unknown]
  - Decreased appetite [Unknown]
  - Abdominal distension [Unknown]
  - Weight decreased [Recovering/Resolving]
  - Abdominal pain upper [Unknown]
  - Musculoskeletal pain [Unknown]
  - Rash [Unknown]
  - Nausea [Unknown]
  - Vomiting [Unknown]
  - Feeling abnormal [Unknown]
  - Asthenia [Unknown]
  - Dyspnoea [Unknown]
  - Fatigue [Unknown]
  - Diarrhoea [Unknown]
  - Asthenia [Unknown]
  - Gastrointestinal pain [Unknown]
  - Dysphagia [Unknown]
  - Fatigue [Unknown]
  - Paranoia [Unknown]
  - Quality of life decreased [Recovering/Resolving]
  - Anxiety [Unknown]
  - Affective disorder [Unknown]
  - Bedridden [Unknown]
  - Hepatectomy [Unknown]
  - Crying [Unknown]
  - Liver disorder [Unknown]
  - Impaired quality of life [Unknown]
  - Bedridden [Unknown]
  - COVID-19 [Unknown]
  - Loss of personal independence in daily activities [Unknown]
  - Ill-defined disorder [Unknown]
  - Metastases to lymph nodes [Unknown]
  - Disease progression [Unknown]
  - Drug ineffective [Unknown]
  - Therapy cessation [Unknown]
  - Ill-defined disorder [Unknown]
  - Depression [Unknown]

NARRATIVE: CASE EVENT DATE: 20230101
